FAERS Safety Report 22244118 (Version 1)
Quarter: 2023Q2

REPORT INFORMATION
  Report Type: Spontaneous
  Country: SK (occurrence: SK)
  Receive Date: 20230424
  Receipt Date: 20230424
  Transmission Date: 20230721
  Serious: Yes (Death, Hospitalization, Other)
  Sender: FDA-Public Use
  Company Number: SK-PFM-2023-02310

PATIENT
  Age: 55 Year
  Sex: Male

DRUGS (4)
  1. ENCORAFENIB [Suspect]
     Active Substance: ENCORAFENIB
     Indication: Metastatic malignant melanoma
     Dosage: 450 MG, QD (1/DAY) (6 CAPSULES OF 75MG)
     Route: 048
     Dates: start: 202001, end: 2020
  2. ENCORAFENIB [Suspect]
     Active Substance: ENCORAFENIB
     Dosage: 300 MG, QD (1/DAY), IN 8TH CYCLE
     Route: 048
     Dates: start: 2020, end: 202209
  3. BINIMETINIB [Suspect]
     Active Substance: BINIMETINIB
     Indication: Metastatic malignant melanoma
     Dosage: 45 MG, BID (2/DAY) (ONCE EVERY 12 HRS)
     Route: 048
     Dates: start: 202001, end: 2020
  4. BINIMETINIB [Suspect]
     Active Substance: BINIMETINIB
     Dosage: 60 MG PER DAY, 8TH CYCLE
     Route: 048
     Dates: start: 2020, end: 202009

REACTIONS (4)
  - Death [Fatal]
  - Pneumonitis [Unknown]
  - COVID-19 [Recovered/Resolved]
  - Haemorrhage [Unknown]

NARRATIVE: CASE EVENT DATE: 20200901
